FAERS Safety Report 10182247 (Version 8)
Quarter: 2017Q1

REPORT INFORMATION
  Report Type: Spontaneous
  Country: CA (occurrence: CA)
  Receive Date: 20140520
  Receipt Date: 20170307
  Transmission Date: 20170428
  Serious: Yes (Hospitalization, Other)
  Sender: FDA-Public Use
  Company Number: CA-ROCHE-1402901

PATIENT
  Age: 58 Year
  Sex: Female
  Weight: 59 kg

DRUGS (6)
  1. XOLAIR [Suspect]
     Active Substance: OMALIZUMAB
     Dosage: UNK
     Route: 058
     Dates: start: 20170215
  2. XOLAIR [Suspect]
     Active Substance: OMALIZUMAB
     Dosage: 300 MG, BIW
     Route: 058
     Dates: start: 20160830
  3. XOLAIR [Suspect]
     Active Substance: OMALIZUMAB
     Indication: ASTHMA
     Dosage: 375 MG, BIW
     Route: 058
     Dates: start: 20140508
  4. XOLAIR [Suspect]
     Active Substance: OMALIZUMAB
     Dosage: UNK
     Route: 058
     Dates: start: 20140521
  5. XOLAIR [Suspect]
     Active Substance: OMALIZUMAB
     Dosage: UNK
     Route: 058
     Dates: start: 20140617
  6. XOLAIR [Suspect]
     Active Substance: OMALIZUMAB
     Dosage: UNK
     Route: 058
     Dates: start: 20170228

REACTIONS (19)
  - Weight decreased [Unknown]
  - Swelling face [Recovered/Resolved]
  - Nausea [Unknown]
  - Osteoarthritis [Unknown]
  - Fatigue [Not Recovered/Not Resolved]
  - Pericarditis [Unknown]
  - Headache [Unknown]
  - Injection site pain [Unknown]
  - Abdominal pain [Unknown]
  - Cough [Recovering/Resolving]
  - Secretion discharge [Recovering/Resolving]
  - Pharyngeal oedema [Recovered/Resolved]
  - Oropharyngeal discomfort [Recovered/Resolved]
  - Epistaxis [Unknown]
  - Sense of oppression [Recovering/Resolving]
  - Dysgeusia [Not Recovered/Not Resolved]
  - Asthma [Recovering/Resolving]
  - Crying [Unknown]
  - Malaise [Recovered/Resolved]

NARRATIVE: CASE EVENT DATE: 20140508
